FAERS Safety Report 6785928-X (Version None)
Quarter: 2010Q2

REPORT INFORMATION
  Report Type: 
  Country: None (occurrence: None)
  Receive Date: 20100623
  Receipt Date: 20100609
  Transmission Date: 20101027
  Serious: Yes (Other)
  Sender: FDA-Public Use
  Company Number: PT-ELI_LILLY_AND_COMPANY-PT201006002546

PATIENT
  Age: 65 Year
  Sex: Male
  Weight: 75.8 kg

DRUGS (5)
  1. HUMALOG MIX 75/25 [Suspect]
     Indication: DIABETES MELLITUS
     Dosage: 16 U, DAILY (1/D) AT BREAKFAST
     Route: 058
     Dates: start: 20100527, end: 20100607
  2. HUMALOG MIX 75/25 [Suspect]
     Dosage: 16 U, DAILY (1/D) AT DINNER
     Route: 058
     Dates: start: 20100527, end: 20100607
  3. RAMIPRIL [Concomitant]
     Indication: HYPERTENSION
     Dosage: 5 MG, UNKNOWN
     Route: 048
     Dates: start: 20060101
  4. METFORMIN HCL [Concomitant]
     Indication: DIABETES MELLITUS
     Dosage: UNK UNK, 3/D
     Route: 048
     Dates: start: 19900101
  5. ATORVASTATIN [Concomitant]
     Indication: DYSLIPIDAEMIA
     Dosage: 20 MG, UNKNOWN
     Route: 048
     Dates: start: 20060101

REACTIONS (2)
  - GINGIVAL BLEEDING [None]
  - SKIN DISCOLOURATION [None]
